FAERS Safety Report 5700209-0 (Version None)
Quarter: 2008Q2

REPORT INFORMATION
  Report Type: 
  Country: None (occurrence: None)
  Receive Date: 20080409
  Receipt Date: 20080321
  Transmission Date: 20081010
  Serious: No
  Sender: FDA-Public Use
  Company Number: US-JNJFOC-20080306152

PATIENT

DRUGS (2)
  1. INVEGA [Suspect]
     Indication: DRUG USE FOR UNKNOWN INDICATION
     Route: 048
  2. NICOTROL [Suspect]
     Indication: SMOKING CESSATION THERAPY
     Route: 055

REACTIONS (1)
  - BLOOD PRESSURE INCREASED [None]
